FAERS Safety Report 7574909-4 (Version None)
Quarter: 2011Q2

REPORT INFORMATION
  Report Type: 
  Country: None (occurrence: None)
  Receive Date: 20110627
  Receipt Date: 20091122
  Transmission Date: 20111010
  Serious: Yes (Hospitalization, Other)
  Sender: FDA-Public Use
  Company Number: US-BAYER-200940355NA

PATIENT
  Age: 63 Year
  Sex: Male
  Weight: 95 kg

DRUGS (12)
  1. TRASYLOL [Suspect]
     Indication: CORONARY ARTERY BYPASS
  2. INSULIN [Concomitant]
     Dosage: UNK
     Dates: start: 20060817
  3. RED BLOOD CELLS [Concomitant]
     Dosage: UNK
     Dates: start: 20060817
  4. AMIODARONE HCL [Concomitant]
     Dosage: UNK
     Dates: start: 20060817
  5. WARFARIN SODIUM [Concomitant]
     Dosage: 3.5 MG, DAILY
  6. LISINOPRIL [Concomitant]
  7. LASIX [Concomitant]
     Dosage: 40 MG, DAILY.
  8. TRASYLOL [Suspect]
     Indication: MITRAL VALVE REPLACEMENT
  9. LOVASTATIN [Concomitant]
     Dosage: 40 MG, TWICE DAILY
  10. ATENOLOL [Concomitant]
  11. NITROGLYCERIN [Concomitant]
     Dosage: UNK
     Dates: start: 20060817
  12. TRASYLOL [Suspect]
     Indication: AORTIC VALVE REPLACEMENT
     Dosage: 200 ML PUMP PRIME
     Route: 042
     Dates: start: 20060817, end: 20060817

REACTIONS (12)
  - EMOTIONAL DISTRESS [None]
  - FEAR [None]
  - PAIN [None]
  - RENAL IMPAIRMENT [None]
  - RENAL INJURY [None]
  - STRESS [None]
  - ANXIETY [None]
  - ANHEDONIA [None]
  - UNEVALUABLE EVENT [None]
  - RENAL FAILURE [None]
  - INJURY [None]
  - PSYCHIATRIC SYMPTOM [None]
